FAERS Safety Report 5113598-5 (Version None)
Quarter: 2006Q3

REPORT INFORMATION
  Report Type: 
  Country: None (occurrence: None)
  Receive Date: 20060921
  Receipt Date: 20060907
  Transmission Date: 20061208
  Serious: Yes (Death)
  Sender: FDA-Public Use
  Company Number: 2006S1006593

PATIENT
  Age: 21 Year
  Sex: Male
  Weight: 108.8633 kg

DRUGS (1)
  1. FENTANYL TRANSDERMAL SYSTEM [Suspect]
     Indication: DRUG ABUSER
     Dosage: 150 UR/HR;TDER
     Dates: start: 20060601, end: 20060608

REACTIONS (3)
  - DEATH [None]
  - DRUG ABUSER [None]
  - OFF LABEL USE [None]
